FAERS Safety Report 4811259-0 (Version None)
Quarter: 2005Q4

REPORT INFORMATION
  Report Type: 
  Country: None (occurrence: None)
  Receive Date: 20051027
  Receipt Date: 20051020
  Transmission Date: 20060501
  Serious: Yes (Hospitalization)
  Sender: FDA-Public Use
  Company Number: US-BRISTOL-MYERS SQUIBB COMPANY-13158258

PATIENT
  Age: 63 Year
  Sex: Male

DRUGS (1)
  1. ERBITUX [Suspect]
     Route: 042
     Dates: start: 20050506, end: 20050506

REACTIONS (7)
  - ERYTHEMA [None]
  - FEELING COLD [None]
  - FOAMING AT MOUTH [None]
  - RASH ERYTHEMATOUS [None]
  - RASH MACULAR [None]
  - SOMNOLENCE [None]
  - WOUND HAEMORRHAGE [None]
